FAERS Safety Report 8790537 (Version 1)
Quarter: 2012Q4

REPORT INFORMATION
  Report Type: Spontaneous
  Country: US (occurrence: None)
  Receive Date: 20120912
  Receipt Date: 20120912
  Transmission Date: 20130627
  Serious: Yes (Hospitalization)
  Sender: FDA-Public Use
  Company Number: None

PATIENT
  Age: 71 Year
  Sex: Male
  Weight: 82.6 kg

DRUGS (10)
  1. YERVOY [Suspect]
     Indication: MELANOMA
     Dosage: 3 mg/kg q3 weeks x 4 IV
     Route: 042
     Dates: start: 20120731, end: 20120821
  2. SYLATRON [Suspect]
     Dosage: 3mcg/kg q1 week IV
     Route: 042
     Dates: start: 20120731, end: 20120828
  3. SIMVASTATIN [Concomitant]
  4. METFORMIN [Concomitant]
  5. ASPIRIN [Concomitant]
  6. HCTZ [Concomitant]
  7. VIT B [Concomitant]
  8. CALCIUM [Concomitant]
  9. MVI [Concomitant]
  10. OMEGA 3 [Concomitant]

REACTIONS (5)
  - Retroperitoneal haemorrhage [None]
  - Blood glucose increased [None]
  - Metastatic neoplasm [None]
  - Malignant neoplasm progression [None]
  - Vomiting [None]
